FAERS Safety Report 5244377-6 (Version None)
Quarter: 2007Q1

REPORT INFORMATION
  Report Type: 
  Country: None (occurrence: None)
  Receive Date: 20070222
  Receipt Date: 20070212
  Transmission Date: 20070707
  Serious: Yes (Hospitalization)
  Sender: FDA-Public Use
  Company Number: FR-GILEAD-2007-0011292

PATIENT
  Age: 47 Year
  Sex: Male

DRUGS (19)
  1. TRUVADA [Suspect]
     Route: 048
     Dates: start: 20070103, end: 20070108
  2. SUSTIVA [Suspect]
     Route: 048
     Dates: start: 20070103, end: 20070108
  3. MYAMBUTOL [Suspect]
     Route: 048
     Dates: start: 20061129
  4. RIMIFON [Suspect]
     Route: 048
     Dates: start: 20061129
  5. PREVISCAN [Suspect]
     Route: 048
  6. PIRILENE [Suspect]
     Route: 048
     Dates: start: 20061129
  7. BACTRIM DS [Concomitant]
  8. COMBIVIR [Concomitant]
  9. NORVIR [Concomitant]
  10. LEXOMIL [Concomitant]
  11. KARDEGIC [Concomitant]
  12. PRAXINOR [Concomitant]
  13. THERALENE [Concomitant]
  14. REYATAZ [Concomitant]
  15. CETIRIZINE HCL [Concomitant]
  16. HEPTAMYL [Concomitant]
  17. DEXERYL CREME [Concomitant]
  18. DUPHALAC [Concomitant]
  19. PARFENAC [Concomitant]

REACTIONS (6)
  - DRUG RASH WITH EOSINOPHILIA AND SYSTEMIC SYMPTOMS [None]
  - EYELID OEDEMA [None]
  - FACE OEDEMA [None]
  - LIP OEDEMA [None]
  - ORAL SOFT TISSUE DISORDER [None]
  - RASH PAPULAR [None]
